FAERS Safety Report 8214518-7 (Version None)
Quarter: 2012Q1

REPORT INFORMATION
  Report Type: 
  Country: None (occurrence: None)
  Receive Date: 20120316
  Receipt Date: 20120316
  Transmission Date: 20120608
  Serious: Yes (Hospitalization, Other)
  Sender: FDA-Public Use
  Company Number: None

PATIENT
  Age: 27 Year
  Sex: Female
  Weight: 74.842 kg

DRUGS (1)
  1. ETHINYL ESTRADIOL [Suspect]
     Indication: CONTRACEPTION
     Route: 067
     Dates: start: 20101001, end: 20101227

REACTIONS (7)
  - BRONCHITIS [None]
  - SINUSITIS [None]
  - EAR INFECTION [None]
  - CHEMICAL INJURY [None]
  - RESPIRATORY DISTRESS [None]
  - SMEAR CERVIX ABNORMAL [None]
  - LARYNGITIS [None]
